FAERS Safety Report 8839472 (Version 1)
Quarter: 2012Q4

REPORT INFORMATION
  Report Type: Spontaneous
  Country: US (occurrence: None)
  Receive Date: 20121012
  Receipt Date: 20121012
  Transmission Date: 20130627
  Serious: Yes (Other)
  Sender: FDA-Public Use
  Company Number: None

PATIENT
  Age: 88 Year
  Sex: Male
  Weight: 59.42 kg

DRUGS (1)
  1. ERTAPENEM [Suspect]
     Indication: ESCHERICHIA URINARY TRACT INFECTION
     Route: 042
     Dates: start: 20121002, end: 20121006

REACTIONS (4)
  - Renal failure acute [None]
  - Grand mal convulsion [None]
  - Confusional state [None]
  - Oxygen saturation decreased [None]
